FAERS Safety Report 8283076-3 (Version None)
Quarter: 2012Q2

REPORT INFORMATION
  Report Type: 
  Country: None (occurrence: None)
  Receive Date: 20120413
  Receipt Date: 20120410
  Transmission Date: 20120825
  Serious: No
  Sender: FDA-Public Use
  Company Number: US-PFIZER INC-2012090304

PATIENT

DRUGS (1)
  1. LYRICA [Suspect]
     Dosage: 100 MG A DAY, 50 IN THE MORNING AND 50 AT NIGHT,

REACTIONS (1)
  - DIZZINESS [None]
